FAERS Safety Report 5871214-9 (Version None)
Quarter: 2008Q3

REPORT INFORMATION
  Report Type: 
  Country: None (occurrence: None)
  Receive Date: 20080829
  Receipt Date: 20071107
  Transmission Date: 20090109
  Serious: Yes (Hospitalization)
  Sender: FDA-Public Use
  Company Number: 2007-01098FE

PATIENT
  Age: 67 Year
  Sex: Female

DRUGS (2)
  1. LHRH () (GONADORELIN) [Suspect]
     Indication: DIAGNOSTIC PROCEDURE
     Dates: start: 19910410, end: 19910410
  2. ACTH () (ACTH) [Suspect]
     Indication: DIAGNOSTIC PROCEDURE
     Dates: start: 19910410, end: 19910410

REACTIONS (8)
  - HAEMATOMA [None]
  - HEADACHE [None]
  - NEOPLASM PROGRESSION [None]
  - NERVE COMPRESSION [None]
  - NUCLEAR MAGNETIC RESONANCE IMAGING ABNORMAL [None]
  - PITUITARY HAEMORRHAGE [None]
  - VISUAL IMPAIRMENT [None]
  - VOMITING [None]
